FAERS Safety Report 8167005-9 (Version None)
Quarter: 2012Q1

REPORT INFORMATION
  Report Type: 
  Country: None (occurrence: None)
  Receive Date: 20120227
  Receipt Date: 20120220
  Transmission Date: 20120608
  Serious: Yes (Hospitalization, Other)
  Sender: FDA-Public Use
  Company Number: JP-ABBOTT-11P-087-0872690-00

PATIENT
  Sex: Female
  Weight: 47.6 kg

DRUGS (9)
  1. ENTECAVIR HYDRATE [Concomitant]
     Indication: PRODUCT USED FOR UNKNOWN INDICATION
     Route: 048
     Dates: start: 20091215
  2. SODIUM GUALENATE HYDRATE/L-GLUTAMINE [Concomitant]
  3. TPN [Concomitant]
     Indication: PRODUCT USED FOR UNKNOWN INDICATION
     Route: 048
  4. LOXOPROFEN SODIUM HYDRATE [Concomitant]
     Indication: PYREXIA
     Dosage: AT THE TIME OF PYREXIA
     Route: 048
  5. MESALAMINE [Concomitant]
     Indication: CROHN'S DISEASE
     Route: 048
  6. HUMIRA [Suspect]
     Dates: start: 20110513, end: 20110513
  7. HUMIRA [Suspect]
     Dates: start: 20110527, end: 20110920
  8. SODIUM GUALENATE HYDRATE/L-GLUTAMINE [Concomitant]
     Indication: PRODUCT USED FOR UNKNOWN INDICATION
     Route: 048
  9. HUMIRA [Suspect]
     Indication: CROHN'S DISEASE
     Dosage: (160MG)
     Route: 058
     Dates: start: 20110428, end: 20110428

REACTIONS (4)
  - SALPINGO-OOPHORITIS [None]
  - FEMALE REPRODUCTIVE NEOPLASM [None]
  - ANASTOMOTIC FISTULA [None]
  - PYREXIA [None]
